FAERS Safety Report 7356148-5 (Version None)
Quarter: 2011Q1

REPORT INFORMATION
  Report Type: 
  Country: None (occurrence: None)
  Receive Date: 20110316
  Receipt Date: 20110218
  Transmission Date: 20110831
  Serious: No
  Sender: FDA-Public Use
  Company Number: US-B.I. PHARMACEUTICALS,INC./RIDGEFIELD-2011-BP-06098BP

PATIENT
  Sex: Female

DRUGS (7)
  1. BIDIL [Concomitant]
     Indication: HYPERTENSION
  2. COREG [Concomitant]
     Indication: ATRIAL FIBRILLATION
  3. DARVON [Concomitant]
     Indication: HYPERTENSION
  4. PRADAXA [Suspect]
     Indication: ATRIAL FIBRILLATION
     Dosage: 300 MG
     Route: 048
     Dates: start: 20110215, end: 20110216
  5. SPIRONOLACTONE [Concomitant]
     Indication: HYPERTENSION
  6. ASPIRIN [Concomitant]
     Indication: PROPHYLAXIS
  7. PRAVASTATIN [Concomitant]
     Indication: BLOOD CHOLESTEROL INCREASED

REACTIONS (2)
  - CHEST PAIN [None]
  - NERVOUSNESS [None]
